FAERS Safety Report 9953402 (Version 1)
Quarter: 2014Q1

REPORT INFORMATION
  Report Type: Spontaneous
  Country: PR (occurrence: PR)
  Receive Date: 20140304
  Receipt Date: 20140304
  Transmission Date: 20141002
  Serious: No
  Sender: FDA-Public Use
  Company Number: PR-ABBVIE-13P-131-1080872-00

PATIENT
  Age: 64 Year
  Sex: Female

DRUGS (5)
  1. HUMIRA [Suspect]
     Indication: PSORIATIC ARTHROPATHY
     Dates: start: 2011
  2. LOSARTAN [Concomitant]
     Indication: HYPERTENSION
     Dosage: 1 TAB DAILY
     Route: 048
  3. CARVEDILOL [Concomitant]
     Indication: HYPERTENSION
     Dosage: 1 TAB DAILY
     Route: 048
  4. NEURONTIN [Concomitant]
     Indication: PAIN
     Dosage: 1 TAB DAILY
     Route: 048
  5. CLARITIN [Concomitant]
     Indication: HYPERSENSITIVITY
     Dosage: 1 TAB DAILY
     Route: 048

REACTIONS (2)
  - Nasopharyngitis [Recovered/Resolved]
  - Ear infection [Recovering/Resolving]
